FAERS Safety Report 21682220 (Version 2)
Quarter: 2023Q1

REPORT INFORMATION
  Report Type: Other
  Country: US (occurrence: None)
  Receive Date: 20221205
  Receipt Date: 20230207
  Transmission Date: 20230418
  Serious: Yes (Death, Other)
  Sender: FDA-Public Use
  Company Number: US-ROCHE-3229670

PATIENT
  Sex: Male

DRUGS (8)
  1. VALCYTE [Suspect]
     Active Substance: VALGANCICLOVIR HYDROCHLORIDE
     Indication: Heart transplant
     Route: 065
  2. CELLCEPT [Suspect]
     Active Substance: MYCOPHENOLATE MOFETIL
     Indication: Heart transplant
     Route: 065
  3. TACROLIMUS [Concomitant]
     Active Substance: TACROLIMUS
  4. GABAPENTIN [Concomitant]
     Active Substance: GABAPENTIN
  5. HYDRALAZINE [Concomitant]
     Active Substance: HYDRALAZINE HYDROCHLORIDE
  6. ASPIRIN [Concomitant]
     Active Substance: ASPIRIN
  7. ASCORBIC ACID [Concomitant]
     Active Substance: ASCORBIC ACID
  8. OMEPRAZOLE [Concomitant]
     Active Substance: OMEPRAZOLE

REACTIONS (4)
  - Multiple organ dysfunction syndrome [Fatal]
  - Septic shock [Unknown]
  - COVID-19 pneumonia [Unknown]
  - Off label use [Unknown]

NARRATIVE: CASE EVENT DATE: 20220101
